FAERS Safety Report 4575694-0 (Version None)
Quarter: 2005Q1

REPORT INFORMATION
  Report Type: 
  Country: None (occurrence: None)
  Receive Date: 20050128
  Receipt Date: 20050128
  Transmission Date: 20050727
  Serious: Yes (Other)
  Sender: FDA-Public Use
  Company Number: None

PATIENT
  Age: 56 Year
  Sex: Female
  Weight: 81.6475 kg

DRUGS (4)
  1. CYMBALTA [Suspect]
     Dosage: 60 MG QD PO
     Route: 048
     Dates: start: 20041108
  2. TENORMIN [Concomitant]
  3. NORVASC [Concomitant]
  4. SINGULAIR [Concomitant]

REACTIONS (1)
  - TIC [None]
